FAERS Safety Report 6150576-1 (Version None)
Quarter: 2009Q2

REPORT INFORMATION
  Report Type: 
  Country: None (occurrence: None)
  Receive Date: 20090409
  Receipt Date: 20090402
  Transmission Date: 20091009
  Serious: Yes (Hospitalization)
  Sender: FDA-Public Use
  Company Number: CH-ABBOTT-09P-151-0563470-00

PATIENT
  Age: 66 Year
  Sex: Male
  Weight: 73 kg

DRUGS (3)
  1. HUMIRA [Suspect]
     Indication: PSORIATIC ARTHROPATHY
     Route: 041
     Dates: start: 20081217, end: 20081231
  2. HUMIRA [Suspect]
     Route: 041
     Dates: start: 20081231
  3. METHOTREXATE SODIUM [Concomitant]
     Indication: DRUG USE FOR UNKNOWN INDICATION
     Route: 048

REACTIONS (6)
  - ANAEMIA [None]
  - ARTHRALGIA [None]
  - PYREXIA [None]
  - RASH ERYTHEMATOUS [None]
  - SERUM SICKNESS [None]
  - THROMBOCYTOPENIA [None]
